FAERS Safety Report 9888687 (Version 1)
Quarter: 2014Q1

REPORT INFORMATION
  Report Type: Spontaneous
  Country: US (occurrence: None)
  Receive Date: 20140210
  Receipt Date: 20140210
  Transmission Date: 20141002
  Serious: Yes (Other)
  Sender: FDA-Public Use
  Company Number: None

PATIENT
  Age: 52 Year
  Sex: Female
  Weight: 81.65 kg

DRUGS (1)
  1. REMICADE [Suspect]
     Indication: GRANULOMA
     Dosage: 400 ML?EVERY 4 WEEKS?INTO A VEIN
     Dates: start: 2012

REACTIONS (1)
  - Blood disorder [None]
